FAERS Safety Report 23416542 (Version 1)
Quarter: 2024Q1

REPORT INFORMATION
  Report Type: Report from Study
  Country: ZA (occurrence: ZA)
  Receive Date: 20240118
  Receipt Date: 20240118
  Transmission Date: 20240409
  Serious: Yes (Hospitalization)
  Sender: FDA-Public Use
  Company Number: ZA-AstraZeneca-2024A008273

PATIENT
  Age: 11 Month
  Sex: Male
  Weight: 7.2 kg

DRUGS (1)
  1. SYNAGIS [Suspect]
     Active Substance: PALIVIZUMAB
     Indication: Antiviral prophylaxis
     Route: 030

REACTIONS (4)
  - Bronchitis [Unknown]
  - Rhinovirus infection [Unknown]
  - Wheezing [Unknown]
  - Upper respiratory tract infection [Unknown]
